FAERS Safety Report 22213986 (Version 1)
Quarter: 2023Q2

REPORT INFORMATION
  Report Type: Spontaneous
  Country: US (occurrence: US)
  Receive Date: 20230414
  Receipt Date: 20230414
  Transmission Date: 20230722
  Serious: No
  Sender: FDA-Public Use
  Company Number: US-JNJFOC-20191122306

PATIENT
  Age: 71 Year
  Sex: Female
  Weight: 53.118 kg

DRUGS (1)
  1. IMODIUM A-D [Suspect]
     Active Substance: LOPERAMIDE HYDROCHLORIDE
     Indication: Diarrhoea
     Dosage: 30 ML 2 A DAY
     Route: 048
     Dates: start: 20191106, end: 20191114

REACTIONS (1)
  - Drug ineffective [Unknown]
